FAERS Safety Report 23040360 (Version 1)
Quarter: 2023Q4

REPORT INFORMATION
  Report Type: Other
  Country: US (occurrence: US)
  Receive Date: 20231006
  Receipt Date: 20231006
  Transmission Date: 20240110
  Serious: Yes (Other)
  Sender: FDA-Public Use
  Company Number: US-TRAVERE-2023TVT00063

PATIENT
  Age: 51 Year
  Sex: Female

DRUGS (5)
  1. CHOLBAM [Suspect]
     Active Substance: CHOLIC ACID
     Indication: Bile acid synthesis disorder
     Route: 048
     Dates: start: 20190920
  2. LORAZEPAM [Concomitant]
     Active Substance: LORAZEPAM
  3. VITAMINS [Concomitant]
     Active Substance: VITAMINS
  4. MINERALS\VITAMINS [Concomitant]
     Active Substance: MINERALS\VITAMINS
  5. VITAMIN D [Concomitant]
     Active Substance: VITAMIN D NOS

REACTIONS (1)
  - Retinitis pigmentosa [Recovering/Resolving]
